FAERS Safety Report 4335704-2 (Version None)
Quarter: 2004Q2

REPORT INFORMATION
  Report Type: 
  Country: None (occurrence: None)
  Receive Date: 20040409
  Receipt Date: 20040329
  Transmission Date: 20050107
  Serious: Yes (Other)
  Sender: FDA-Public Use
  Company Number: GB-GLAXOSMITHKLINE-B0328405A

PATIENT
  Age: 34 Year
  Sex: Male
  Weight: 60 kg

DRUGS (4)
  1. MALARONE [Suspect]
     Indication: MALARIA PROPHYLAXIS
     Route: 048
     Dates: end: 20040222
  2. CIPROXIN [Concomitant]
     Indication: GASTROENTERITIS
     Dosage: 500MG TWICE PER DAY
     Route: 042
     Dates: start: 20040208, end: 20040209
  3. CIPROXIN [Concomitant]
     Dosage: 500MG TWICE PER DAY
     Route: 048
     Dates: start: 20040210, end: 20040214
  4. CETIRIZINE HCL [Concomitant]
     Dosage: 10MG PER DAY
     Route: 048

REACTIONS (1)
  - PSORIASIS [None]
